FAERS Safety Report 8136045-8 (Version None)
Quarter: 2012Q1

REPORT INFORMATION
  Report Type: 
  Country: None (occurrence: None)
  Receive Date: 20120214
  Receipt Date: 20120209
  Transmission Date: 20120608
  Serious: Yes (Hospitalization, Other)
  Sender: FDA-Public Use
  Company Number: US-PFIZER INC-2011265588

PATIENT
  Sex: Female

DRUGS (6)
  1. VYTORIN [Concomitant]
     Indication: BLOOD CHOLESTEROL INCREASED
     Dosage: UNK
     Dates: start: 20000101
  2. CHANTIX [Suspect]
     Indication: SMOKING CESSATION THERAPY
     Dosage: SAMPLE PACKS
     Dates: start: 20070518, end: 20070618
  3. LISINOPRIL [Concomitant]
     Indication: HYPERTENSION
     Dosage: UNK
     Dates: start: 20000101
  4. ADVAIR DISKUS 100/50 [Concomitant]
     Indication: CHRONIC OBSTRUCTIVE PULMONARY DISEASE
     Dosage: UNK
     Dates: start: 20060101
  5. EFFEXOR [Concomitant]
     Indication: DEPRESSION
  6. EFFEXOR [Concomitant]
     Indication: ANXIETY DISORDER
     Dosage: UNK
     Dates: start: 20060101, end: 20071204

REACTIONS (3)
  - CONVULSION [None]
  - DEPRESSION [None]
  - AMNESIA [None]
